FAERS Safety Report 11233894 (Version 1)
Quarter: 2015Q3

REPORT INFORMATION
  Report Type: Spontaneous
  Country: CA (occurrence: CA)
  Receive Date: 20150702
  Receipt Date: 20150702
  Transmission Date: 20151125
  Serious: Yes (Hospitalization)
  Sender: FDA-Public Use
  Company Number: CA-TEVA-574095ACC

PATIENT
  Age: 62 Year
  Sex: Female
  Weight: 84 kg

DRUGS (1)
  1. TEVA-RISEDRONATE [Suspect]
     Active Substance: RISEDRONATE SODIUM
     Indication: OSTEOPOROSIS
     Dosage: 5 MILLIGRAM DAILY;
     Route: 048

REACTIONS (2)
  - Hip fracture [Unknown]
  - Stress fracture [Unknown]
